FAERS Safety Report 5972550-8 (Version None)
Quarter: 2008Q4

REPORT INFORMATION
  Report Type: 
  Country: None (occurrence: None)
  Receive Date: 20081201
  Receipt Date: 20081124
  Transmission Date: 20090506
  Serious: Yes (Hospitalization)
  Sender: FDA-Public Use
  Company Number: B0547509A

PATIENT
  Age: 63 Year
  Sex: Female

DRUGS (2)
  1. AMOXICILLIN TRIHYDRATE [Suspect]
     Indication: DENTAL CARE
     Route: 048
     Dates: start: 20080627, end: 20080701
  2. SOLUPRED [Suspect]
     Indication: DENTAL CARE
     Route: 048
     Dates: start: 20080627, end: 20080701

REACTIONS (2)
  - DERMATITIS EXFOLIATIVE [None]
  - RESPIRATORY DISORDER [None]
